FAERS Safety Report 9193589 (Version 2)
Quarter: 2013Q2

REPORT INFORMATION
  Report Type: Report from Study
  Country: CA (occurrence: CA)
  Receive Date: 20130327
  Receipt Date: 20130606
  Transmission Date: 20140414
  Serious: Yes (Life-Threatening, Hospitalization)
  Sender: FDA-Public Use
  Company Number: CA-TEVA-393944USA

PATIENT
  Age: 1 Year
  Sex: Male
  Weight: 9.1 kg

DRUGS (10)
  1. LESTAURTINIB [Suspect]
     Indication: LYMPHOCYTIC LEUKAEMIA
     Dates: start: 20130514, end: 20130526
  2. CYTARABINE [Suspect]
     Indication: LYMPHOCYTIC LEUKAEMIA
     Dates: start: 20130211, end: 20130311
  3. DAUNORUBICIN [Suspect]
     Indication: LYMPHOCYTIC LEUKAEMIA
     Dates: start: 20130211, end: 20130511
  4. DEXAMETHASONE [Suspect]
     Indication: LYMPHOCYTIC LEUKAEMIA
     Dates: start: 20130211, end: 20130327
  5. HYDROCORTISONE [Suspect]
     Indication: LYMPHOCYTIC LEUKAEMIA
     Dates: start: 20130211, end: 20130527
  6. L-ASPARAGINASE [Suspect]
     Indication: LYMPHOCYTIC LEUKAEMIA
     Dates: start: 20130211, end: 20130513
  7. METHOTREXATE [Suspect]
     Indication: LYMPHOCYTIC LEUKAEMIA
     Dates: start: 20130211, end: 20130510
  8. PREDNISONE [Suspect]
     Indication: LYMPHOCYTIC LEUKAEMIA
     Dates: start: 20130211, end: 20130217
  9. VINCRISTINE [Suspect]
     Indication: LYMPHOCYTIC LEUKAEMIA
     Dates: start: 20130211, end: 20130524
  10. CYCLOPHOSPHAMIDE [Suspect]
     Dates: end: 20130513

REACTIONS (3)
  - Hypertriglyceridaemia [Recovering/Resolving]
  - Alanine aminotransferase increased [Recovering/Resolving]
  - Aspartate aminotransferase increased [Recovering/Resolving]
